FAERS Safety Report 25983880 (Version 1)
Quarter: 2025Q4

REPORT INFORMATION
  Report Type: Spontaneous
  Country: US (occurrence: None)
  Receive Date: 20251031
  Receipt Date: 20251031
  Transmission Date: 20260118
  Serious: Yes (Hospitalization)
  Sender: FDA-CTU
  Company Number: None

PATIENT
  Age: 52 Year
  Sex: Female
  Weight: 109.8 kg

DRUGS (1)
  1. DULOXETINE HYDROCHLORIDE [Suspect]
     Active Substance: DULOXETINE HYDROCHLORIDE
     Dates: start: 20230401

REACTIONS (7)
  - Clostridium difficile colitis [None]
  - Haemodynamic instability [None]
  - Respiratory failure [None]
  - Enterobacter infection [None]
  - Enterococcal infection [None]
  - Pneumonia [None]
  - Wound [None]

NARRATIVE: CASE EVENT DATE: 20230415
